FAERS Safety Report 17393671 (Version 1)
Quarter: 2020Q1

REPORT INFORMATION
  Report Type: Report from Study
  Country: US (occurrence: US)
  Receive Date: 20200209
  Receipt Date: 20200209
  Transmission Date: 20200409
  Serious: Yes (Hospitalization, Other)
  Sender: FDA-Public Use
  Company Number: NVSC2020US026780

PATIENT
  Age: 4 Year
  Sex: Male
  Weight: 15.6 kg

DRUGS (7)
  1. PIQRAY [Suspect]
     Active Substance: ALPELISIB
     Dosage: 50 MG
     Route: 048
     Dates: start: 20200126
  2. TAPAZOLE [Concomitant]
     Active Substance: METHIMAZOLE
     Indication: HYPERTHYROIDISM
     Dosage: 5 MG
     Route: 065
     Dates: start: 20191002, end: 20200127
  3. ALBUTEROL. [Concomitant]
     Active Substance: ALBUTEROL
     Indication: COUGH
     Dosage: 3 DF (PUFFS)
     Route: 065
     Dates: start: 20160902, end: 20200127
  4. PIQRAY [Suspect]
     Active Substance: ALPELISIB
     Indication: PIK3CA RELATED OVERGROWTH SPECTRUM
     Dosage: 50 MG
     Route: 048
     Dates: start: 20190524
  5. ZYRTEC [Concomitant]
     Active Substance: CETIRIZINE HYDROCHLORIDE
     Indication: ALLERGY PROPHYLAXIS
     Dosage: 2.5 MG
     Route: 065
     Dates: start: 20190627, end: 20200127
  6. SODIUM CHLORIDE. [Concomitant]
     Active Substance: SODIUM CHLORIDE
     Indication: INCREASED VISCOSITY OF UPPER RESPIRATORY SECRETION
     Dosage: 300 ML
     Route: 065
     Dates: start: 20180820, end: 20200127
  7. BACLOFEN. [Concomitant]
     Active Substance: BACLOFEN
     Indication: MUSCLE SPASTICITY
     Dosage: 5 MG
     Route: 065
     Dates: start: 20191125, end: 20200127

REACTIONS (6)
  - Oral pain [Not Recovered/Not Resolved]
  - Pyrexia [Not Recovered/Not Resolved]
  - Urine output increased [Not Recovered/Not Resolved]
  - Cough [Not Recovered/Not Resolved]
  - Exaggerated startle response [Not Recovered/Not Resolved]
  - Diarrhoea [Not Recovered/Not Resolved]

NARRATIVE: CASE EVENT DATE: 20200117
